FAERS Safety Report 6415443-4 (Version None)
Quarter: 2009Q4

REPORT INFORMATION
  Report Type: 
  Country: None (occurrence: None)
  Receive Date: 20091022
  Receipt Date: 20091007
  Transmission Date: 20100525
  Serious: Yes (Other)
  Sender: FDA-Public Use
  Company Number: 2009002565

PATIENT
  Age: 58 Year
  Sex: Female
  Weight: 40 kg

DRUGS (5)
  1. ERLOTINIB HYDROCHLORIDE [Suspect]
     Indication: LUNG ADENOCARCINOMA
     Dosage: (150 MG,QD),ORAL
     Route: 048
     Dates: start: 20090306, end: 20090516
  2. FENTANYL-100 [Suspect]
     Dosage: (2.1 MG, 1 IN 3 D), TRANSDERMAL
     Route: 062
     Dates: start: 20090402, end: 20090501
  3. DEXAMETHASONE TAB [Concomitant]
  4. DICLOFENAC (DICLOFENAC) [Concomitant]
  5. OXYCODONE HCL [Concomitant]

REACTIONS (6)
  - ABDOMINAL DISTENSION [None]
  - FLATULENCE [None]
  - HAEMOGLOBIN DECREASED [None]
  - MALIGNANT NEOPLASM PROGRESSION [None]
  - PARONYCHIA [None]
  - RED BLOOD CELL COUNT DECREASED [None]
